FAERS Safety Report 17919336 (Version 5)
Quarter: 2020Q3

REPORT INFORMATION
  Report Type: Spontaneous
  Country: JP (occurrence: JP)
  Receive Date: 20200619
  Receipt Date: 20200814
  Transmission Date: 20201103
  Serious: Yes (Hospitalization)
  Sender: FDA-Public Use
  Company Number: JP-ELI_LILLY_AND_COMPANY-JP202006007541

PATIENT
  Age: 68 Year
  Sex: Female

DRUGS (14)
  1. ADCIRCA [Suspect]
     Active Substance: TADALAFIL
     Indication: SCLERODERMA
     Dosage: 40 MG, DAILY
     Route: 048
     Dates: start: 20191019
  2. UPTRAVI [Suspect]
     Active Substance: SELEXIPAG
     Dosage: 1 MG, BID
     Route: 048
     Dates: start: 20200213
  3. OPSUMIT [Concomitant]
     Active Substance: MACITENTAN
     Indication: PULMONARY ARTERIAL HYPERTENSION
     Dosage: 10 MG, DAILY
     Dates: start: 20191023
  4. SAMSCA [Concomitant]
     Active Substance: TOLVAPTAN
     Indication: PRODUCT USED FOR UNKNOWN INDICATION
     Dosage: 7.5 MG, DAILY
     Dates: start: 20200530
  5. UPTRAVI [Suspect]
     Active Substance: SELEXIPAG
     Dosage: 0.6 MG, BID
     Route: 048
     Dates: start: 20191111
  6. UPTRAVI [Suspect]
     Active Substance: SELEXIPAG
     Dosage: 0.8 MG, BID
     Route: 048
     Dates: start: 20191204
  7. UPTRAVI [Suspect]
     Active Substance: SELEXIPAG
     Indication: PULMONARY ARTERIAL HYPERTENSION
     Dosage: 0.2 MG, BID
     Route: 048
     Dates: start: 20191029
  8. UPTRAVI [Suspect]
     Active Substance: SELEXIPAG
     Indication: SCLERODERMA
     Dosage: 0.4 MG, BID
     Route: 048
     Dates: start: 20191104
  9. OPSUMIT [Concomitant]
     Active Substance: MACITENTAN
     Indication: SCLERODERMA
  10. SAMSCA [Concomitant]
     Active Substance: TOLVAPTAN
     Dosage: 15 MG, DAILY
     Dates: start: 20200623
  11. UPTRAVI [Suspect]
     Active Substance: SELEXIPAG
     Dosage: 1.2 MG, BID
     Route: 048
     Dates: start: 20200226
  12. UPTRAVI [Suspect]
     Active Substance: SELEXIPAG
     Dosage: 1.4 MG, BID
     Route: 048
     Dates: start: 20200304
  13. ADCIRCA [Suspect]
     Active Substance: TADALAFIL
     Indication: PULMONARY ARTERIAL HYPERTENSION
     Dosage: 20 MG, DAILY
     Route: 048
     Dates: start: 20191016, end: 20191018
  14. UPTRAVI [Suspect]
     Active Substance: SELEXIPAG
     Dosage: 1.6 MG, BID
     Route: 048
     Dates: start: 20200311, end: 20200617

REACTIONS (2)
  - Headache [Recovered/Resolved]
  - Pulmonary veno-occlusive disease [Recovered/Resolved]

NARRATIVE: CASE EVENT DATE: 20191030
